FAERS Safety Report 6696653-8 (Version None)
Quarter: 2010Q2

REPORT INFORMATION
  Report Type: 
  Country: None (occurrence: None)
  Receive Date: 20100421
  Receipt Date: 20091230
  Transmission Date: 20101027
  Serious: No
  Sender: FDA-Public Use
  Company Number: US-000037

PATIENT
  Sex: Female
  Weight: 58.9676 kg

DRUGS (2)
  1. KUVAN [Suspect]
     Indication: PHENYLKETONURIA
     Dosage: 900 MG QD ORAL
     Route: 048
     Dates: start: 20080101
  2. NUTRIENTS WITHOUT PHENYLALANINE [Concomitant]

REACTIONS (7)
  - AMINO ACID LEVEL INCREASED [None]
  - CHILLS [None]
  - COUGH [None]
  - DIARRHOEA [None]
  - INFLUENZA LIKE ILLNESS [None]
  - PYREXIA [None]
  - SOMNOLENCE [None]
